FAERS Safety Report 25691351 (Version 1)
Quarter: 2025Q3

REPORT INFORMATION
  Report Type: Spontaneous
  Country: US (occurrence: None)
  Receive Date: 20250818
  Receipt Date: 20250818
  Transmission Date: 20251020
  Serious: Yes (Disabling, Other)
  Sender: FDA-CTU
  Company Number: None

PATIENT
  Age: 71 Year
  Sex: Male
  Weight: 81 kg

DRUGS (2)
  1. SYNTHROID [Suspect]
     Active Substance: LEVOTHYROXINE SODIUM
     Indication: Hypothyroidism
     Dates: start: 19900815, end: 19910815
  2. ARMOUR THYROID [Concomitant]
     Active Substance: THYROID, PORCINE

REACTIONS (2)
  - Therapeutic product effect decreased [None]
  - Impaired quality of life [None]

NARRATIVE: CASE EVENT DATE: 20150811
